FAERS Safety Report 14116820 (Version 3)
Quarter: 2018Q2

REPORT INFORMATION
  Report Type: Spontaneous
  Country: IE (occurrence: IE)
  Receive Date: 20171023
  Receipt Date: 20180510
  Transmission Date: 20180711
  Serious: Yes (Hospitalization, Other)
  Sender: FDA-Public Use
  Company Number: IE-ASTRAZENECA-2017SE91179

PATIENT
  Age: 68 Year
  Sex: Male

DRUGS (8)
  1. DELTACORTRIL ENTERIC [Concomitant]
     Indication: ACROMEGALY
     Dates: start: 1980
  2. SOMAVERT [Suspect]
     Active Substance: PEGVISOMANT
     Indication: ACROMEGALY
     Dosage: 20.0MG UNKNOWN
     Route: 065
     Dates: start: 2015
  3. GLUCOPHAGE (GENERIC) [Concomitant]
     Indication: TYPE 2 DIABETES MELLITUS
     Dates: start: 2003
  4. SOMAVERT [Suspect]
     Active Substance: PEGVISOMANT
     Indication: ACROMEGALY
     Dosage: 20.0MG UNKNOWN
     Route: 065
     Dates: start: 20140116
  5. ELTROXIN [Suspect]
     Active Substance: LEVOTHYROXINE
     Indication: HYPOTHYROIDISM
     Route: 065
     Dates: start: 1980
  6. NEXIUM CONTROL [Suspect]
     Active Substance: ESOMEPRAZOLE MAGNESIUM
     Indication: HIATUS HERNIA
     Dosage: 40.0MG UNKNOWN
     Route: 048
     Dates: start: 2000
  7. SOLU-CORTEF [Suspect]
     Active Substance: HYDROCORTISONE SODIUM SUCCINATE
     Route: 065
  8. ASPIRIN (GENERIC) [Suspect]
     Active Substance: ASPIRIN
     Route: 065

REACTIONS (3)
  - Cerebrovascular accident [Unknown]
  - Fall [Unknown]
  - Subdural haematoma [Unknown]

NARRATIVE: CASE EVENT DATE: 201611
